FAERS Safety Report 9918220 (Version 1)
Quarter: 2014Q1

REPORT INFORMATION
  Report Type: Spontaneous
  Country: US (occurrence: US)
  Receive Date: 20140224
  Receipt Date: 20140224
  Transmission Date: 20141002
  Serious: Yes (Hospitalization)
  Sender: FDA-Public Use
  Company Number: US-ROCHE-1353859

PATIENT
  Age: 43 Year
  Sex: Female

DRUGS (3)
  1. VEMURAFENIB [Suspect]
     Indication: MALIGNANT MELANOMA
     Route: 065
     Dates: start: 20130122
  2. VEMURAFENIB [Suspect]
     Dosage: LOW DOSE
     Route: 065
     Dates: start: 20130305
  3. MK-3475 [Suspect]
     Indication: MALIGNANT MELANOMA
     Route: 065
     Dates: start: 20121012, end: 20121214

REACTIONS (3)
  - Drug hypersensitivity [Recovered/Resolved]
  - Multi-organ disorder [Recovering/Resolving]
  - Anaphylactic reaction [Recovered/Resolved]
